FAERS Safety Report 6505297-X (Version None)
Quarter: 2009Q4

REPORT INFORMATION
  Report Type: 
  Country: None (occurrence: None)
  Receive Date: 20091218
  Receipt Date: 20090513
  Transmission Date: 20100525
  Serious: No
  Sender: FDA-Public Use
  Company Number: US-BRISTOL-MYERS SQUIBB COMPANY-14622112

PATIENT
  Sex: Male

DRUGS (3)
  1. QUESTRAN [Suspect]
     Indication: BLOOD CHOLESTEROL
  2. PRAVACHOL [Suspect]
     Indication: BLOOD CHOLESTEROL
  3. NIACIN [Suspect]
     Indication: BLOOD CHOLESTEROL

REACTIONS (1)
  - DRUG INEFFECTIVE [None]
